FAERS Safety Report 8363666-X (Version None)
Quarter: 2012Q1

REPORT INFORMATION
  Report Type: 
  Country: None (occurrence: None)
  Receive Date: 20120323
  Receipt Date: 20110526
  Transmission Date: 20120608
  Serious: Yes (Other)
  Sender: FDA-Public Use
  Company Number: 163-21880-11041552

PATIENT
  Age: 68 Year
  Sex: Male

DRUGS (5)
  1. FUROSEMIDE [Concomitant]
  2. HYDROMORPHONE HCL [Concomitant]
  3. AMITRIPTYLINE HCL [Concomitant]
  4. PROVENTIL [Concomitant]
  5. REVLIMID [Suspect]
     Indication: MULTIPLE MYELOMA
     Dosage: 10 MG, 1 IN 1 D, PO
     Route: 048
     Dates: start: 20100607, end: 20101214

REACTIONS (6)
  - TREMOR [None]
  - CONDITION AGGRAVATED [None]
  - RASH [None]
  - MALAISE [None]
  - FATIGUE [None]
  - PNEUMONIA [None]
